FAERS Safety Report 23209721 (Version 2)
Quarter: 2023Q4

REPORT INFORMATION
  Report Type: Spontaneous
  Country: IT (occurrence: IT)
  Receive Date: 20231121
  Receipt Date: 20231203
  Transmission Date: 20240109
  Serious: Yes (Other)
  Sender: FDA-Public Use
  Company Number: IT-ASGENIA-AS2023009487

PATIENT
  Age: 2 Year
  Sex: Female

DRUGS (15)
  1. LEVETIRACETAM [Suspect]
     Active Substance: LEVETIRACETAM
     Indication: Sleep related hypermotor epilepsy
     Dosage: 1000 MILLIGRAM, ONCE A DAY
     Route: 065
  2. LEVETIRACETAM [Suspect]
     Active Substance: LEVETIRACETAM
     Indication: Focal dyscognitive seizures
  3. TOPIRAMATE [Suspect]
     Active Substance: TOPIRAMATE
     Indication: Focal dyscognitive seizures
     Dosage: UNK
  4. TOPIRAMATE [Suspect]
     Active Substance: TOPIRAMATE
     Indication: Sleep related hypermotor epilepsy
  5. CARBAMAZEPINE [Suspect]
     Active Substance: CARBAMAZEPINE
     Indication: Sleep related hypermotor epilepsy
     Dosage: 600 MILLIGRAM, ONCE A DAY
     Route: 065
  6. CARBAMAZEPINE [Suspect]
     Active Substance: CARBAMAZEPINE
     Indication: Focal dyscognitive seizures
  7. CLOBAZAM [Suspect]
     Active Substance: CLOBAZAM
     Indication: Focal dyscognitive seizures
     Dosage: UNK
     Route: 065
  8. CLOBAZAM [Suspect]
     Active Substance: CLOBAZAM
     Indication: Sleep related hypermotor epilepsy
  9. PERAMPANEL [Suspect]
     Active Substance: PERAMPANEL
     Indication: Focal dyscognitive seizures
     Dosage: 6 MILLIGRAM, ONCE A DAY
     Route: 065
  10. PERAMPANEL [Suspect]
     Active Substance: PERAMPANEL
     Indication: Sleep related hypermotor epilepsy
  11. VALPROATE [Suspect]
     Active Substance: VALPROIC ACID
     Indication: Sleep related hypermotor epilepsy
     Dosage: UNK
     Route: 065
  12. VALPROATE [Suspect]
     Active Substance: VALPROIC ACID
     Indication: Focal dyscognitive seizures
  13. ZONISAMIDE [Suspect]
     Active Substance: ZONISAMIDE
     Indication: Sleep related hypermotor epilepsy
     Dosage: 50 MILLIGRAM, ONCE A DAY
     Route: 065
  14. ZONISAMIDE [Suspect]
     Active Substance: ZONISAMIDE
     Indication: Focal dyscognitive seizures
  15. CLONAZEPAM [Suspect]
     Active Substance: CLONAZEPAM
     Indication: Seizure
     Dosage: UNK
     Route: 065

REACTIONS (2)
  - Therapy non-responder [Unknown]
  - Multiple-drug resistance [Unknown]
